FAERS Safety Report 20497154 (Version 3)
Quarter: 2022Q2

REPORT INFORMATION
  Report Type: Spontaneous
  Country: IN (occurrence: IN)
  Receive Date: 20220221
  Receipt Date: 20220406
  Transmission Date: 20220721
  Serious: Yes (Hospitalization, Other)
  Sender: FDA-Public Use
  Company Number: IN-BAYER-2022A024104

PATIENT
  Age: 42 Year
  Sex: Male

DRUGS (6)
  1. ANTIHEMOPHILIC FACTOR, HUMAN RECOMBINANT [Suspect]
     Active Substance: ANTIHEMOPHILIC FACTOR, HUMAN RECOMBINANT
     Indication: Factor VIII deficiency
     Dosage: UNK (INTERMITTENT ON-DEMAND THERAPY FOR SPONTANEOUS JOINT BLEEDING)
     Route: 042
     Dates: start: 2010
  2. ANTIHEMOPHILIC FACTOR, HUMAN RECOMBINANT [Suspect]
     Active Substance: ANTIHEMOPHILIC FACTOR, HUMAN RECOMBINANT
     Indication: Haemarthrosis
     Dosage: 30 IU/KG, ONCE (TO TREAT THE  KNEE JOINT SWELLING)
  3. ANTIHEMOPHILIC FACTOR, HUMAN RECOMBINANT [Suspect]
     Active Substance: ANTIHEMOPHILIC FACTOR, HUMAN RECOMBINANT
     Indication: Factor VIII deficiency
     Dosage: 30 IU/KG, ONCE (TO TREAT THE  KNEE JOINT SWELLING)
  4. TENOFOVIR [Concomitant]
     Active Substance: TENOFOVIR
     Indication: HIV infection
     Dosage: 300 MG, UNK
  5. LAMIVUDINE [Concomitant]
     Active Substance: LAMIVUDINE
     Indication: HIV infection
     Dosage: 300 MG, UNK
  6. EFAVIRENZ [Concomitant]
     Active Substance: EFAVIRENZ
     Indication: HIV infection
     Dosage: 600 MG, UNK

REACTIONS (2)
  - Acute myocardial infarction [Recovering/Resolving]
  - Chest pain [Recovering/Resolving]
